FAERS Safety Report 15975358 (Version 2)
Quarter: 2019Q4

REPORT INFORMATION
  Report Type: Report from Study
  Country: CA (occurrence: CA)
  Receive Date: 20190218
  Receipt Date: 20191130
  Transmission Date: 20200122
  Serious: Yes (Other)
  Sender: FDA-Public Use
  Company Number: CA-ROCHE-2260166

PATIENT
  Age: 70 Year
  Sex: Female

DRUGS (18)
  1. ASAPHEN [Concomitant]
     Active Substance: ASPIRIN
  2. D-TABS [Concomitant]
     Active Substance: CHOLECALCIFEROL
  3. METHOTREXATE. [Concomitant]
     Active Substance: METHOTREXATE
  4. AMLODIPINE [Concomitant]
     Active Substance: AMLODIPINE BESYLATE
  5. LUMIGAN [Concomitant]
     Active Substance: BIMATOPROST
  6. FOLIC ACID. [Concomitant]
     Active Substance: FOLIC ACID
  7. AZOPT [Concomitant]
     Active Substance: BRINZOLAMIDE
  8. ATORVASTATIN [Concomitant]
     Active Substance: ATORVASTATIN
  9. TELMISARTAN. [Concomitant]
     Active Substance: TELMISARTAN
  10. PREDNISONE. [Concomitant]
     Active Substance: PREDNISONE
  11. HCTZ [Concomitant]
     Active Substance: HYDROCHLOROTHIAZIDE
  12. ACTEMRA [Suspect]
     Active Substance: TOCILIZUMAB
     Indication: TEMPORAL ARTERITIS
  13. HYDROCHLOROTHIAZIDE. [Concomitant]
     Active Substance: HYDROCHLOROTHIAZIDE
  14. ACTEMRA [Suspect]
     Active Substance: TOCILIZUMAB
     Indication: VASCULITIS
     Dosage: ONGOING-YES
     Route: 058
     Dates: start: 20190121
  15. ALENDRONATE [Concomitant]
     Active Substance: ALENDRONATE SODIUM
  16. PANTOPRAZOLE [Concomitant]
     Active Substance: PANTOPRAZOLE
  17. SERTRALINE [Concomitant]
     Active Substance: SERTRALINE HYDROCHLORIDE
  18. REFRESH PLUS [Concomitant]
     Active Substance: CARBOXYMETHYLCELLULOSE SODIUM

REACTIONS (10)
  - Chest pain [Recovered/Resolved]
  - Thirst [Recovered/Resolved]
  - Abdominal pain upper [Unknown]
  - Pain [Recovered/Resolved]
  - Respiratory disorder [Unknown]
  - Head discomfort [Unknown]
  - Feeling hot [Recovered/Resolved]
  - Blood pressure systolic [Recovered/Resolved]
  - Musculoskeletal chest pain [Unknown]
  - Musculoskeletal pain [Unknown]

NARRATIVE: CASE EVENT DATE: 20190121
